FAERS Safety Report 7105499-8 (Version None)
Quarter: 2010Q4

REPORT INFORMATION
  Report Type: 
  Country: None (occurrence: None)
  Receive Date: 20101116
  Receipt Date: 20101108
  Transmission Date: 20110411
  Serious: Yes (Hospitalization, Other)
  Sender: FDA-Public Use
  Company Number: BR-ROCHE-708636

PATIENT
  Age: 30 Year
  Sex: Female
  Weight: 61 kg

DRUGS (1)
  1. ROACUTAN [Suspect]
     Indication: ACNE
     Dosage: FREQUENCY: 1 CAPSULE PER DAY, 2 CAPSULES THE OTHER DAY; DRUG WAS DISCONTINUED FOR 3 DAYS
     Route: 048
     Dates: start: 20100201

REACTIONS (11)
  - ABDOMINAL PAIN UPPER [None]
  - ACNE [None]
  - ANAL FISSURE [None]
  - CONSTIPATION [None]
  - DIARRHOEA [None]
  - DRY MOUTH [None]
  - FEELING OF DESPAIR [None]
  - HAEMORRHOIDS [None]
  - HEADACHE [None]
  - THERAPEUTIC RESPONSE DECREASED [None]
  - VOMITING [None]
